FAERS Safety Report 21183288 (Version 1)
Quarter: 2022Q3

REPORT INFORMATION
  Report Type: Spontaneous
  Country: None (occurrence: US)
  Receive Date: 20220808
  Receipt Date: 20220808
  Transmission Date: 20221027
  Serious: Yes (Hospitalization, Other)
  Sender: FDA-Public Use
  Company Number: US-Oxford Pharmaceuticals, LLC-2131581

PATIENT
  Age: 17 Year
  Sex: Female
  Weight: 103.00 kg

DRUGS (4)
  1. AMLODIPINE BESYLATE [Suspect]
     Active Substance: AMLODIPINE BESYLATE
     Indication: Product used for unknown indication
  2. ACETAMINOPHEN [Suspect]
     Active Substance: ACETAMINOPHEN
  3. IBUPROFEN [Suspect]
     Active Substance: IBUPROFEN
  4. AMOXICILLIN [Suspect]
     Active Substance: AMOXICILLIN

REACTIONS (9)
  - Intentional overdose [Unknown]
  - Seizure [Unknown]
  - Heart rate increased [Unknown]
  - Blood pressure systolic decreased [Unknown]
  - Blood pressure diastolic decreased [Unknown]
  - PO2 decreased [Unknown]
  - PCO2 increased [Unknown]
  - Blood pH decreased [Unknown]
  - Acute kidney injury [Unknown]
